FAERS Safety Report 8847635 (Version 3)
Quarter: 2016Q4

REPORT INFORMATION
  Report Type: Spontaneous
  Country: US (occurrence: US)
  Receive Date: 20121018
  Receipt Date: 20161117
  Transmission Date: 20170207
  Serious: Yes (Hospitalization)
  Sender: FDA-Public Use
  Company Number: US-ASTRAZENECA-2012SE76987

PATIENT
  Age: 481 Month
  Sex: Female
  Weight: 72.6 kg

DRUGS (7)
  1. XOPINEX [Concomitant]
     Indication: ASTHMA
     Dosage: 45.0UG AS REQUIRED
     Route: 055
     Dates: start: 2012
  2. ASA [Concomitant]
     Active Substance: ASPIRIN
     Indication: CEREBROVASCULAR ACCIDENT
     Route: 048
     Dates: start: 200906
  3. BREO ELLIPTA [Concomitant]
     Active Substance: FLUTICASONE FUROATE\VILANTEROL TRIFENATATE
     Indication: ASTHMA
  4. MULTIVITAMIN [Concomitant]
     Active Substance: VITAMINS
     Indication: SUPPLEMENTATION THERAPY
     Dosage: DAILY
     Dates: start: 2006
  5. SYMBICORT [Suspect]
     Active Substance: BUDESONIDE\FORMOTEROL FUMARATE DIHYDRATE
     Indication: ASTHMA
     Dosage: 160/4.5 MCG, TWO PUFFS TWICE A DAY
     Route: 055
     Dates: start: 2006
  6. BRONCHAID OTC [Concomitant]
     Indication: ASTHMA
     Dosage: EPHEDRINE SULFATE 25 MG AND GUAIFENESIN 400 MG, EVERY FOUR HOURS
     Route: 048
     Dates: start: 20161105
  7. PROVATRIPTIN [Concomitant]
     Indication: MIGRAINE

REACTIONS (10)
  - Chest discomfort [Unknown]
  - Productive cough [Unknown]
  - Cerebrovascular accident [Recovered/Resolved]
  - Drug dose omission [Unknown]
  - Nasopharyngitis [Recovered/Resolved]
  - Dyspnoea [Unknown]
  - Cough [Unknown]
  - Insomnia [Unknown]
  - Carotid artery dissection [Recovered/Resolved]
  - Amnesia [Unknown]

NARRATIVE: CASE EVENT DATE: 200906
